FAERS Safety Report 15018998 (Version 1)
Quarter: 2018Q2

REPORT INFORMATION
  Report Type: Spontaneous
  Country: US (occurrence: US)
  Receive Date: 20180524
  Receipt Date: 20180524
  Transmission Date: 20180711
  Serious: No
  Sender: FDA-Public Use
  Company Number: None

PATIENT
  Age: 52 Year
  Sex: Male

DRUGS (1)
  1. REGORAFENIB 120 MG Q21 DAYS [Suspect]
     Active Substance: REGORAFENIB
     Indication: TRANSITIONAL CELL CARCINOMA METASTATIC
     Route: 048
     Dates: start: 201805, end: 20180515

REACTIONS (1)
  - Pulmonary embolism [None]

NARRATIVE: CASE EVENT DATE: 20180515
